FAERS Safety Report 8078613-8 (Version None)
Quarter: 2012Q1

REPORT INFORMATION
  Report Type: 
  Country: None (occurrence: None)
  Receive Date: 20120124
  Receipt Date: 20120109
  Transmission Date: 20120608
  Serious: Yes (Other)
  Sender: FDA-Public Use
  Company Number: 1000026502

PATIENT
  Age: 58 Year
  Sex: Male
  Weight: 84 kg

DRUGS (6)
  1. ROFLUMILAST (ROFLUMILAST) (TABLETS) [Suspect]
     Indication: CHRONIC OBSTRUCTIVE PULMONARY DISEASE
     Dosage: 500 MCG, ORAL
     Route: 048
     Dates: start: 20110204, end: 20110608
  2. IBUPROFEN (IBUPROFEN) (TABLETS) (IBUPROFEN) [Concomitant]
  3. SYMBICORT (BUDESONIDE W/FORMOTEROL FUMARATE) (BUDESONIDE W/FORMOTEROL [Concomitant]
  4. ALBUTEROL [Concomitant]
  5. SPIRIVA (TIOTROPIUM BROMIDE) (TIOTROPIUM BROMIDE) [Concomitant]
  6. LISINOPRIL COMP (ZESTORETIC) (ZESTORETIC) [Concomitant]

REACTIONS (6)
  - NERVOUSNESS [None]
  - DEPRESSION [None]
  - RESTLESSNESS [None]
  - STRESS [None]
  - ANXIETY [None]
  - CONDITION AGGRAVATED [None]
